FAERS Safety Report 26201795 (Version 1)
Quarter: 2025Q4

REPORT INFORMATION
  Report Type: Spontaneous
  Country: CN (occurrence: CN)
  Receive Date: 20251226
  Receipt Date: 20251226
  Transmission Date: 20260118
  Serious: Yes (Hospitalization, Other)
  Sender: NEXUS PHARMACEUTICALS
  Company Number: CN-Nexus Pharma-000553

PATIENT
  Age: 66 Year
  Sex: Male

DRUGS (3)
  1. TIROFIBAN HYDROCHLORIDE [Suspect]
     Active Substance: TIROFIBAN HYDROCHLORIDE
     Indication: Coronary artery occlusion
     Dosage: 10 UG/KG OVER THREE MINUTES) FOLLOWED BY A CONTINUOUS INFUSION (0.15 UG/KG/MIN).
  2. ASPIRIN [Concomitant]
     Active Substance: ASPIRIN
  3. CLOPIDOGREL [Concomitant]
     Active Substance: CLOPIDOGREL BISULFATE

REACTIONS (1)
  - Pulmonary alveolar haemorrhage [Recovered/Resolved]
